FAERS Safety Report 24095788 (Version 1)
Quarter: 2024Q3

REPORT INFORMATION
  Report Type: Spontaneous
  Country: BE (occurrence: BE)
  Receive Date: 20240716
  Receipt Date: 20240716
  Transmission Date: 20241017
  Serious: Yes (Other)
  Sender: TEVA
  Company Number: BE-TEVA-VS-3220760

PATIENT
  Age: 30 Year
  Sex: Female

DRUGS (14)
  1. EPIRUBICIN [Suspect]
     Active Substance: EPIRUBICIN
     Indication: Triple negative breast cancer
     Dosage: FOR 1 CYCLE
     Route: 065
  2. BEVACIZUMAB [Concomitant]
     Active Substance: BEVACIZUMAB
     Indication: Triple negative breast cancer
     Dosage: MAINTENANCE DOSE FOR 3 CYCLES
     Route: 065
  3. PIQRAY [Suspect]
     Active Substance: ALPELISIB
     Indication: Triple negative breast cancer
     Route: 065
  4. PIQRAY [Suspect]
     Active Substance: ALPELISIB
     Indication: Triple negative breast cancer
     Route: 065
  5. VINCRISTINE [Suspect]
     Active Substance: VINCRISTINE
     Indication: Triple negative breast cancer
     Dosage: CMF-VP CHEMOTHERAPY FOR 1 CYCLE
     Route: 065
  6. PREDNISONE [Suspect]
     Active Substance: PREDNISONE
     Indication: Triple negative breast cancer
     Dosage: CMF-VP CHEMOTHERAPY FOR 1 CYCLE
     Route: 065
  7. METHOTREXATE [Suspect]
     Active Substance: METHOTREXATE
     Indication: Triple negative breast cancer
     Dosage: CMF-VP CHEMOTHERAPY FOR 1 CYCLE
     Route: 065
  8. CYCLOPHOSPHAMIDE [Suspect]
     Active Substance: CYCLOPHOSPHAMIDE
     Indication: Triple negative breast cancer
     Dosage: CMF-VP CHEMOTHERAPY FOR 1 CYCLE
     Route: 065
  9. FLUOROURACIL [Suspect]
     Active Substance: FLUOROURACIL
     Indication: Triple negative breast cancer
     Dosage: CMF-VP CHEMOTHERAPY FOR 1 CYCLE
     Route: 065
  10. FLUOROURACIL [Suspect]
     Active Substance: FLUOROURACIL
     Indication: Triple negative breast cancer
     Dosage: FOR 2 CYCLES
     Route: 065
  11. CARBOPLATIN [Concomitant]
     Active Substance: CARBOPLATIN
     Indication: Triple negative breast cancer
     Dosage: FOR 4 CYCLES
     Route: 065
  12. VINORELBINE [Suspect]
     Active Substance: VINORELBINE TARTRATE
     Indication: Triple negative breast cancer
     Dosage: FOR 2 CYCLES
     Route: 065
  13. ATEZOLIZUMAB [Concomitant]
     Active Substance: ATEZOLIZUMAB
     Indication: Triple negative breast cancer
     Dosage: FOR 4 CYCLES
     Route: 065
  14. ATEZOLIZUMAB [Concomitant]
     Active Substance: ATEZOLIZUMAB
     Indication: Triple negative breast cancer
     Dosage: MAINTENANCE DOSE FOR 3 CYCLES
     Route: 065

REACTIONS (3)
  - Drug ineffective [Unknown]
  - Off label use [Unknown]
  - Drug eruption [Unknown]
